FAERS Safety Report 22788693 (Version 6)
Quarter: 2025Q4

REPORT INFORMATION
  Report Type: Report from Study
  Country: JP (occurrence: JP)
  Receive Date: 20230804
  Receipt Date: 20251217
  Transmission Date: 20260118
  Serious: Yes (Hospitalization, Other)
  Sender: UCB
  Company Number: JP-UCBJ-CD202306157UCBPHAPROD

PATIENT
  Age: 20 Year
  Weight: 67.5 kg

DRUGS (12)
  1. FENFLURAMINE HYDROCHLORIDE [Suspect]
     Active Substance: FENFLURAMINE HYDROCHLORIDE
     Indication: Severe myoclonic epilepsy of infancy
     Dosage: 0.065 MILLIGRAM/KILOGRAM, 2X/DAY (BID)
     Route: 061
  2. FENFLURAMINE HYDROCHLORIDE [Suspect]
     Active Substance: FENFLURAMINE HYDROCHLORIDE
     Dosage: 0.081 MILLIGRAM/KILOGRAM, 2X/DAY (BID)
     Route: 061
  3. FENFLURAMINE HYDROCHLORIDE [Suspect]
     Active Substance: FENFLURAMINE HYDROCHLORIDE
     Dosage: 0.065 MILLIGRAM/KILOGRAM, 2X/DAY (BID)
     Route: 061
  4. FENFLURAMINE HYDROCHLORIDE [Suspect]
     Active Substance: FENFLURAMINE HYDROCHLORIDE
     Dosage: 0.5 MILLIGRAM/KILOGRAM, 2X/DAY (BID)
     Route: 061
  5. FENFLURAMINE HYDROCHLORIDE [Suspect]
     Active Substance: FENFLURAMINE HYDROCHLORIDE
     Dosage: 0.065 MILLIGRAM/KILOGRAM, 2X/DAY (BID)
     Route: 061
  6. FENFLURAMINE HYDROCHLORIDE [Suspect]
     Active Substance: FENFLURAMINE HYDROCHLORIDE
     Dosage: 0.073 MILLIGRAM/KILOGRAM, 2X/DAY (BID)
     Route: 061
  7. FENFLURAMINE HYDROCHLORIDE [Suspect]
     Active Substance: FENFLURAMINE HYDROCHLORIDE
     Dosage: 0.07 MILLIGRAM/KILOGRAM, 2X/DAY (BID)
     Route: 061
  8. FENFLURAMINE HYDROCHLORIDE [Suspect]
     Active Substance: FENFLURAMINE HYDROCHLORIDE
     Dosage: 0.04 MILLIGRAM/KILOGRAM, 2X/DAY (BID)
     Route: 061
  9. MYSTAN [Concomitant]
     Active Substance: CLOBAZAM
     Indication: Severe myoclonic epilepsy of infancy
     Dosage: UNK
     Route: 061
  10. DIACOMIT [Concomitant]
     Active Substance: STIRIPENTOL
     Indication: Severe myoclonic epilepsy of infancy
     Dosage: UNK
     Route: 061
  11. FYCOMPA [Concomitant]
     Active Substance: PERAMPANEL
     Indication: Severe myoclonic epilepsy of infancy
     Dosage: UNK
     Route: 061
  12. POTASSIUM BROMIDE [Concomitant]
     Active Substance: POTASSIUM BROMIDE
     Indication: Severe myoclonic epilepsy of infancy
     Dosage: UNK
     Route: 061

REACTIONS (13)
  - Pneumonia aspiration [Recovered/Resolved]
  - Hypercreatininaemia [Recovering/Resolving]
  - Acute psychosis [Recovered/Resolved]
  - Dehydration [Recovering/Resolving]
  - Somnolence [Recovering/Resolving]
  - Hypophagia [Recovered/Resolved]
  - Road traffic accident [Recovered/Resolved]
  - Mydriasis [Recovered/Resolved]
  - Parkinsonism [Not Recovered/Not Resolved]
  - Pyrexia [Recovered/Resolved]
  - Therapeutic response decreased [Unknown]
  - Prescribed underdose [Unknown]
  - Off label use [Unknown]
